FAERS Safety Report 13895930 (Version 1)
Quarter: 2017Q3

REPORT INFORMATION
  Report Type: Spontaneous
  Country: US (occurrence: US)
  Receive Date: 20170823
  Receipt Date: 20170823
  Transmission Date: 20171127
  Serious: Yes (Hospitalization)
  Sender: FDA-Public Use
  Company Number: US-ENDO PHARMACEUTICALS INC-2016-005621

PATIENT
  Age: 63 Year
  Sex: Female
  Weight: 53.57 kg

DRUGS (18)
  1. PREDNISONE TABLETS [Suspect]
     Active Substance: PREDNISONE
     Indication: DYSPNOEA
     Dosage: TAPER
     Route: 048
     Dates: start: 20160830, end: 20160910
  2. WARFARIN [Concomitant]
     Active Substance: WARFARIN
     Indication: PRODUCT USED FOR UNKNOWN INDICATION
     Dosage: EVERY EVENING, INR CHECK EVERY WEEK, 2.5 MONDAY, 7.5 TUESDAY AND WEDNESDAY, 5 MG THURSDAY
     Route: 048
  3. EXJADE [Concomitant]
     Active Substance: DEFERASIROX
     Indication: BLOOD CREATINE INCREASED
     Dosage: 1000 MG, OD
     Route: 065
     Dates: start: 2002
  4. HEPARIN [Concomitant]
     Active Substance: HEPARIN SODIUM
     Indication: PRODUCT USED FOR UNKNOWN INDICATION
     Route: 065
  5. PREDNISONE TABLETS [Suspect]
     Active Substance: PREDNISONE
     Indication: INTERSTITIAL LUNG DISEASE
     Dosage: TAPER
     Route: 048
     Dates: start: 201511
  6. REVATIO [Suspect]
     Active Substance: SILDENAFIL CITRATE
     Indication: PULMONARY HYPERTENSION
     Dosage: 20 MG, TID
     Route: 048
     Dates: start: 2002
  7. PREDNISONE TABLETS [Suspect]
     Active Substance: PREDNISONE
     Dosage: TAPER
     Route: 048
     Dates: start: 20160316
  8. EXJADE [Concomitant]
     Active Substance: DEFERASIROX
     Dosage: 2500 MG, OD
     Route: 065
  9. LORATADINE. [Concomitant]
     Active Substance: LORATADINE
     Indication: PRODUCT USED FOR UNKNOWN INDICATION
     Route: 065
  10. PROCRIT [Concomitant]
     Active Substance: ERYTHROPOIETIN
     Indication: PRODUCT USED FOR UNKNOWN INDICATION
     Dosage: 1-1.5 ML (40000-60000 UNITS) DEPENDING ON HCT ({28% 60000 UNITS, 28-32% 40000 UNITS)
     Route: 058
  11. FUROSEMIDE TABLETS 20 MG [Concomitant]
     Active Substance: FUROSEMIDE
     Indication: PRODUCT USED FOR UNKNOWN INDICATION
     Route: 048
  12. LIDOCAINE. [Concomitant]
     Active Substance: LIDOCAINE
     Indication: PRODUCT USED FOR UNKNOWN INDICATION
     Route: 065
  13. ZOLOFT [Concomitant]
     Active Substance: SERTRALINE HYDROCHLORIDE
     Indication: PRODUCT USED FOR UNKNOWN INDICATION
     Route: 065
  14. OXYCODONE HCL 10MG [Concomitant]
     Active Substance: OXYCODONE HYDROCHLORIDE
     Indication: PAIN
     Route: 048
  15. FENTANYL. [Concomitant]
     Active Substance: FENTANYL
     Indication: PRODUCT USED FOR UNKNOWN INDICATION
     Route: 065
  16. ZOLPIDEM [Concomitant]
     Active Substance: ZOLPIDEM\ZOLPIDEM TARTRATE
     Indication: SLEEP DISORDER
     Route: 048
  17. PREDNISONE TABLETS [Suspect]
     Active Substance: PREDNISONE
     Indication: PNEUMONIA
     Dosage: TAPER
     Route: 048
     Dates: start: 2016
  18. PROLIA [Concomitant]
     Active Substance: DENOSUMAB
     Indication: PRODUCT USED FOR UNKNOWN INDICATION
     Route: 065

REACTIONS (9)
  - Hostility [Unknown]
  - Fluid retention [Unknown]
  - Pneumonia [Recovered/Resolved]
  - Anger [Unknown]
  - Discomfort [Unknown]
  - Aggression [Unknown]
  - Oral pain [Unknown]
  - Fatigue [Unknown]
  - Swelling [Unknown]

NARRATIVE: CASE EVENT DATE: 201511
